FAERS Safety Report 7788798-6 (Version None)
Quarter: 2011Q3

REPORT INFORMATION
  Report Type: 
  Country: None (occurrence: None)
  Receive Date: 20110930
  Receipt Date: 20110922
  Transmission Date: 20111222
  Serious: Yes (Other)
  Sender: FDA-Public Use
  Company Number: FR-ABBOTT-11P-056-0857847-00

PATIENT
  Sex: Female
  Weight: 80 kg

DRUGS (8)
  1. TAMOXIFEN CITRATE [Concomitant]
     Indication: PROPHYLAXIS
  2. UVEDOSE [Concomitant]
     Indication: HYPOVITAMINOSIS
     Route: 048
     Dates: start: 20100621
  3. FERROUS SULFATE TAB [Concomitant]
     Indication: PROPHYLAXIS
  4. TAMOXIFEN CITRATE [Concomitant]
     Indication: BREAST CANCER
     Dates: start: 20060301
  5. ATRIPLA [Concomitant]
     Indication: HIV INFECTION
     Dosage: 245/200/60 MG
     Route: 048
     Dates: start: 20101011, end: 20110318
  6. FERROUS SULFATE TAB [Concomitant]
     Indication: IRON DEFICIENCY
     Dosage: 100/0.70
     Route: 048
     Dates: start: 20110318
  7. KALETRA [Suspect]
     Indication: HIV INFECTION
     Dosage: 800/200 MG
     Route: 048
     Dates: start: 20110318
  8. COMBIVIR [Concomitant]
     Indication: HIV INFECTION
     Dosage: 600/300 MG
     Route: 048
     Dates: start: 20110318

REACTIONS (2)
  - ABORTION SPONTANEOUS [None]
  - MATERNAL EXPOSURE DURING PREGNANCY [None]
